FAERS Safety Report 7760451 (Version 2)
Quarter: 2013Q2

REPORT INFORMATION
  Report Type: Spontaneous
  Country: GB (occurrence: GB)
  Receive Date: 20110114
  Receipt Date: 20130507
  Transmission Date: 20140414
  Serious: Yes (Hospitalization, Other)
  Sender: FDA-Public Use
  Company Number: PHHY2011GB00441

PATIENT
  Age: 32 Year
  Sex: Female
  Weight: 44 kg

DRUGS (4)
  1. PARACETAMOL [Suspect]
     Indication: GASTRITIS ALCOHOLIC
     Dosage: 4 G, DAILY
     Route: 048
  2. PARACETAMOL [Suspect]
     Dosage: 105 MG/L, UNK
     Route: 048
  3. VITAMINS [Concomitant]
     Dosage: UNK UKN, UNK
  4. CHLORDIAZEPOXIDE [Concomitant]
     Dosage: UNK UKN, UNK

REACTIONS (3)
  - Acute hepatic failure [Recovered/Resolved]
  - Nausea [Recovered/Resolved]
  - Agitation [Recovered/Resolved]
